FAERS Safety Report 9108440 (Version 1)
Quarter: 2013Q1

REPORT INFORMATION
  Report Type: Report from Study
  Country: US (occurrence: US)
  Receive Date: 20130222
  Receipt Date: 20130222
  Transmission Date: 20140127
  Serious: Yes (Other)
  Sender: FDA-Public Use
  Company Number: US-CELGENEUS-163-22393-13022243

PATIENT
  Age: 78 Year
  Sex: Male

DRUGS (1)
  1. ISTODAX [Suspect]
     Indication: PERIPHERAL T-CELL LYMPHOMA UNSPECIFIED
     Dosage: 14 MILLIGRAM/SQ. METER
     Route: 065

REACTIONS (2)
  - Bone marrow failure [Unknown]
  - Disease progression [Unknown]
